FAERS Safety Report 9168652 (Version 2)
Quarter: 2013Q2

REPORT INFORMATION
  Report Type: Spontaneous
  Country: FR (occurrence: FR)
  Receive Date: 20130318
  Receipt Date: 20130406
  Transmission Date: 20140414
  Serious: Yes (Hospitalization)
  Sender: FDA-Public Use
  Company Number: FR-B.I. PHARMACEUTICALS,INC./RIDGEFIELD-2013-FF-00742FF

PATIENT
  Age: 70 Year
  Sex: Male

DRUGS (6)
  1. PRADAXA [Suspect]
     Indication: ATRIAL FIBRILLATION
     Dosage: 300 MG
     Route: 048
     Dates: start: 201209
  2. IRBESARTAN [Concomitant]
     Dosage: 75 MG
  3. UROREC [Concomitant]
     Indication: PROSTATIC ADENOMA
     Dosage: 8 MG
  4. FLECAINE [Concomitant]
     Indication: ATRIAL FIBRILLATION
     Dosage: 200 MG
  5. HEMIGOXINE [Concomitant]
     Indication: ATRIAL FIBRILLATION
     Dosage: 0.125 MG
  6. VENLAFAXINE [Concomitant]
     Indication: DEPRESSION
     Dosage: 75 MG

REACTIONS (1)
  - Myocardial infarction [Recovered/Resolved with Sequelae]
